FAERS Safety Report 5722718-0 (Version None)
Quarter: 2008Q2

REPORT INFORMATION
  Report Type: 
  Country: None (occurrence: None)
  Receive Date: 20080429
  Receipt Date: 20070821
  Transmission Date: 20081010
  Serious: No
  Sender: FDA-Public Use
  Company Number: US-ASTRAZENECA-2007UW16490

PATIENT
  Age: 73 Year
  Sex: Male
  Weight: 117.9 kg

DRUGS (4)
  1. NEXIUM [Suspect]
     Indication: GASTROOESOPHAGEAL REFLUX DISEASE
     Route: 048
     Dates: start: 20030101
  2. NORVASC [Concomitant]
  3. ARICEPT [Concomitant]
  4. LEXAPRO [Concomitant]

REACTIONS (1)
  - ASPIRATION [None]
